FAERS Safety Report 4959629-4 (Version None)
Quarter: 2006Q1

REPORT INFORMATION
  Report Type: 
  Country: None (occurrence: None)
  Receive Date: 20060328
  Receipt Date: 20060313
  Transmission Date: 20060701
  Serious: Yes (Hospitalization)
  Sender: FDA-Public Use
  Company Number: 2006-139811-NL

PATIENT
  Age: 17 Year
  Sex: Female
  Weight: 65.8 kg

DRUGS (2)
  1. NUVARING [Suspect]
     Indication: CONTRACEPTION
     Dosage: VAGINAL, INSERT 1 RING X21 DAYS AND REMOVE X7 DAYS
     Route: 067
     Dates: start: 20060101, end: 20060301
  2. LAMICTAL [Concomitant]

REACTIONS (2)
  - CYST REMOVAL [None]
  - UTERINE INFLAMMATION [None]
